FAERS Safety Report 7773125-0 (Version None)
Quarter: 2011Q3

REPORT INFORMATION
  Report Type: 
  Country: None (occurrence: None)
  Receive Date: 20110922
  Receipt Date: 20110413
  Transmission Date: 20111222
  Serious: No
  Sender: FDA-Public Use
  Company Number: US-ASTRAZENECA-2009UW14358

PATIENT
  Age: 40 Year
  Sex: Male
  Weight: 122.5 kg

DRUGS (13)
  1. AMBIEN [Concomitant]
     Dates: start: 20050913
  2. GEMFIBROZIL [Concomitant]
     Dates: start: 20050621
  3. CYCLOPHOSPHAMIDE [Concomitant]
     Dates: start: 20050927
  4. SEROQUEL [Suspect]
     Route: 048
     Dates: start: 20050915
  5. ATENOLOL [Concomitant]
     Dates: start: 20050225
  6. DEPAKOTE ER [Concomitant]
     Dates: start: 20050913
  7. SEROQUEL [Suspect]
     Indication: INSOMNIA
     Dosage: 300 MG
     Route: 048
     Dates: start: 20030101, end: 20080101
  8. SEROQUEL [Suspect]
     Route: 048
     Dates: start: 20050915
  9. CITALOPRAM HYDROBROMIDE [Concomitant]
     Dates: start: 20050913
  10. SEROQUEL [Suspect]
     Indication: BIPOLAR I DISORDER
     Dosage: 300 MG
     Route: 048
     Dates: start: 20030101, end: 20080101
  11. CLONAZEPAM [Concomitant]
     Dates: start: 20050913
  12. HYDROCODONE BITARTRATE AND ACETAMINOPHEN [Concomitant]
     Dosage: 5-500
     Dates: start: 20050927
  13. PROTONIX [Concomitant]
     Dates: start: 20050621

REACTIONS (5)
  - WEIGHT INCREASED [None]
  - BLOOD TRIGLYCERIDES INCREASED [None]
  - OBESITY [None]
  - TYPE 2 DIABETES MELLITUS [None]
  - BLOOD CHOLESTEROL INCREASED [None]
